FAERS Safety Report 6558869-0 (Version None)
Quarter: 2010Q1

REPORT INFORMATION
  Report Type: 
  Country: None (occurrence: None)
  Receive Date: 20100129
  Receipt Date: 20100119
  Transmission Date: 20100710
  Serious: Yes (Hospitalization, Other)
  Sender: FDA-Public Use
  Company Number: US-PFIZER INC-2010009069

PATIENT
  Sex: Female
  Weight: 40.816 kg

DRUGS (11)
  1. LYRICA [Suspect]
     Indication: BURNING SENSATION
     Dosage: 100 MG, 3X/DAY
     Route: 048
     Dates: start: 20090401
  2. NEURONTIN [Suspect]
     Indication: MIGRAINE
  3. OXYCODONE HCL AND ACETAMINOPHEN [Concomitant]
     Indication: BACK DISORDER
     Dosage: 5/325MG, 4X/DAY
     Route: 048
  4. OXYCODONE HCL AND ACETAMINOPHEN [Concomitant]
     Indication: SPINAL DISORDER
  5. TIZANIDINE [Concomitant]
     Indication: BACK DISORDER
     Dosage: 2 MG, 2X/DAY
     Route: 048
  6. TIZANIDINE [Concomitant]
     Indication: SPINAL DISORDER
  7. FOLGARD [Concomitant]
     Indication: BLOOD HOMOCYSTEINE INCREASED
     Dosage: UNK, 1X/DAY
     Route: 048
  8. OMEPRAZOLE [Concomitant]
     Indication: ABDOMINAL DISCOMFORT
     Dosage: 20 MG, 1X/DAY
     Route: 048
  9. MIACALCIN [Concomitant]
     Indication: OSTEOPOROSIS
     Dosage: UNK
     Route: 045
  10. ATIVAN [Concomitant]
     Indication: PARKINSON'S DISEASE
     Dosage: 2 MG, 3X/DAY
     Route: 048
  11. SINEMET [Concomitant]
     Indication: PARKINSON'S DISEASE
     Dosage: UNK
     Route: 048
     Dates: end: 20100113

REACTIONS (10)
  - BALANCE DISORDER [None]
  - CATARACT OPERATION [None]
  - CELLULITIS [None]
  - CONFUSIONAL STATE [None]
  - COORDINATION ABNORMAL [None]
  - DRUG INEFFECTIVE FOR UNAPPROVED INDICATION [None]
  - FATIGUE [None]
  - SOMNOLENCE [None]
  - SPEECH DISORDER [None]
  - VITAMIN D DECREASED [None]
